FAERS Safety Report 15673322 (Version 3)
Quarter: 2018Q4

REPORT INFORMATION
  Report Type: Spontaneous
  Country: US (occurrence: US)
  Receive Date: 20181129
  Receipt Date: 20181211
  Transmission Date: 20190205
  Serious: No
  Sender: FDA-Public Use
  Company Number: US-PFIZER INC-2018477997

PATIENT
  Sex: Male

DRUGS (4)
  1. TIKOSYN [Suspect]
     Active Substance: DOFETILIDE
     Dosage: UNK (LOAD ON MONDAY NIGHT, TWO ON TUESDAY, TWO ON WEDNESDAY, TWO ON THURSDAY AND ONE YESTERDAY)
  2. BABY ASPIRIN [Concomitant]
     Active Substance: ASPIRIN
     Dosage: UNK
  3. XARELTO [Concomitant]
     Active Substance: RIVAROXABAN
     Dosage: UNK
  4. TIKOSYN [Suspect]
     Active Substance: DOFETILIDE
     Dosage: 0.5 MG, UNK
     Dates: start: 20181112

REACTIONS (9)
  - Asthenia [Unknown]
  - Pruritus [Unknown]
  - Thirst [Unknown]
  - Grip strength decreased [Unknown]
  - Lip dry [Unknown]
  - Muscular weakness [Unknown]
  - Muscle spasms [Unknown]
  - Muscle fatigue [Unknown]
  - Chest discomfort [Unknown]

NARRATIVE: CASE EVENT DATE: 20181117
